FAERS Safety Report 8262813 (Version 2)
Quarter: 2013Q1

REPORT INFORMATION
  Report Type: Spontaneous
  Country: US (occurrence: US)
  Receive Date: 20111124
  Receipt Date: 20130114
  Transmission Date: 20140127
  Serious: Yes (Other)
  Sender: FDA-Public Use
  Company Number: US-ROCHE-1015963

PATIENT
  Sex: Male
  Weight: 83.99 kg

DRUGS (2)
  1. ACCUTANE [Suspect]
     Indication: ACNE
     Route: 065
     Dates: start: 1983
  2. ROACCUTANE [Suspect]
     Indication: ACNE
     Route: 065
     Dates: start: 2008

REACTIONS (8)
  - Inflammatory bowel disease [Unknown]
  - Colitis ulcerative [Unknown]
  - Colon injury [Unknown]
  - Depression [Not Recovered/Not Resolved]
  - Injury [Unknown]
  - Rectal abscess [Unknown]
  - Anal fistula [Unknown]
  - Abscess intestinal [Unknown]
